FAERS Safety Report 23472218 (Version 1)
Quarter: 2024Q1

REPORT INFORMATION
  Report Type: Spontaneous
  Country: US (occurrence: None)
  Receive Date: 20240202
  Receipt Date: 20240202
  Transmission Date: 20240409
  Serious: Yes (Life-Threatening)
  Sender: FDA-Public Use
  Company Number: None

PATIENT
  Age: 24 Year
  Sex: Female
  Weight: 57.6 kg

DRUGS (1)
  1. MONOFERRIC [Suspect]
     Active Substance: FERRIC DERISOMALTOSE
     Indication: Iron deficiency anaemia
     Dates: start: 20231107, end: 20231107

REACTIONS (7)
  - Infusion related reaction [None]
  - Dyspnoea [None]
  - Emotional distress [None]
  - Throat irritation [None]
  - Sinus tachycardia [None]
  - Hypoaesthesia [None]
  - Chest pain [None]

NARRATIVE: CASE EVENT DATE: 20231107
